FAERS Safety Report 10407384 (Version 1)
Quarter: 2014Q1

REPORT INFORMATION
  Report Type: Spontaneous
  Country: US (occurrence: None)
  Receive Date: 20140228
  Receipt Date: 20140228
  Transmission Date: 20141002
  Serious: No
  Sender: FDA-Public Use
  Company Number: 225765LEO

PATIENT
  Sex: Male

DRUGS (1)
  1. PICATO (INGENOL MEBUTATE)  (0.015%) [Suspect]
     Indication: ACTINIC KERATOSIS
     Route: 061
     Dates: start: 20140111, end: 20140113

REACTIONS (4)
  - Application site dryness [None]
  - Application site exfoliation [None]
  - Application site pruritus [None]
  - Application site pain [None]
